FAERS Safety Report 13663596 (Version 2)
Quarter: 2017Q3

REPORT INFORMATION
  Report Type: Spontaneous
  Country: US (occurrence: US)
  Receive Date: 20170619
  Receipt Date: 20170801
  Transmission Date: 20171127
  Serious: No
  Sender: FDA-Public Use
  Company Number: US-PFIZER INC-2017263211

PATIENT
  Age: 60 Year
  Sex: Male

DRUGS (4)
  1. GABAPENTIN. [Concomitant]
     Active Substance: GABAPENTIN
     Dosage: 600 MG, UNK
     Dates: start: 20160914, end: 20160914
  2. PODIAPN [Concomitant]
     Active Substance: DIETARY SUPPLEMENT
     Dosage: 1 DF, 2X/DAY
  3. LYRICA [Suspect]
     Active Substance: PREGABALIN
     Indication: BURNING SENSATION
     Dosage: 300 MG, 2X/DAY
     Dates: start: 20170714
  4. DULOXETINE. [Concomitant]
     Active Substance: DULOXETINE
     Dosage: 60 MG, UNK
     Dates: start: 20170517, end: 20170517

REACTIONS (3)
  - Neuropathy peripheral [Not Recovered/Not Resolved]
  - Dizziness [Unknown]
  - Arthralgia [Unknown]

NARRATIVE: CASE EVENT DATE: 20170714
